FAERS Safety Report 8220243-9 (Version None)
Quarter: 2012Q1

REPORT INFORMATION
  Report Type: 
  Country: None (occurrence: None)
  Receive Date: 20120320
  Receipt Date: 20120308
  Transmission Date: 20120608
  Serious: Yes (Other)
  Sender: FDA-Public Use
  Company Number: US-JNJCP-30000094633

PATIENT
  Sex: Female

DRUGS (1)
  1. NTG OFAW GRAPEFRUIT CREAM CLEANSER USA NTOFCCUS [Suspect]
     Route: 061

REACTIONS (3)
  - DERMATITIS CONTACT [None]
  - DRY SKIN [None]
  - BURNING SENSATION [None]
